FAERS Safety Report 23333531 (Version 1)
Quarter: 2023Q4

REPORT INFORMATION
  Report Type: Spontaneous
  Country: US (occurrence: US)
  Receive Date: 20231222
  Receipt Date: 20231222
  Transmission Date: 20240110
  Serious: No
  Sender: FDA-Public Use
  Company Number: US-CTI BIOPHARMA-2023US04236

PATIENT

DRUGS (9)
  1. VONJO [Suspect]
     Active Substance: PACRITINIB
     Indication: Product used for unknown indication
     Dosage: 200 MG, BID
     Route: 048
  2. SENNA PLUS [SENNA ALEXANDRINA] [Concomitant]
  3. WHEY [Concomitant]
     Active Substance: WHEY
  4. FAMOTIDINE [Concomitant]
     Active Substance: FAMOTIDINE
  5. FLAX SEEDS [Concomitant]
     Active Substance: FLAX SEEDS
  6. CANNABIS SATIVA SEED OIL\HERBALS [Concomitant]
     Active Substance: CANNABIS SATIVA SEED OIL\HERBALS
  7. MAGNESIUM [Concomitant]
     Active Substance: MAGNESIUM
  8. VALACYCLOVIR [Concomitant]
     Active Substance: VALACYCLOVIR HYDROCHLORIDE
  9. VEGETARIAN B COMPLEX [Concomitant]

REACTIONS (1)
  - Fatigue [Not Recovered/Not Resolved]
